FAERS Safety Report 12207604 (Version 2)
Quarter: 2016Q1

REPORT INFORMATION
  Report Type: Spontaneous
  Country: US (occurrence: US)
  Receive Date: 20160324
  Receipt Date: 20160329
  Transmission Date: 20160526
  Serious: Yes (Other)
  Sender: FDA-Public Use
  Company Number: US-BAXTER-2016BAX013594

PATIENT
  Age: 84 Year
  Sex: Male
  Weight: 93 kg

DRUGS (3)
  1. NITROGLYCERIN IN DEXTROSE [Suspect]
     Active Substance: NITROGLYCERIN
     Indication: PRODUCT USED FOR UNKNOWN INDICATION
     Route: 065
  2. NITROGLYCERIN IN DEXTROSE [Suspect]
     Active Substance: NITROGLYCERIN
     Route: 065
     Dates: start: 20160315, end: 20160315
  3. NITROGLYCERIN IN DEXTROSE [Suspect]
     Active Substance: NITROGLYCERIN
     Route: 065
     Dates: start: 20160315

REACTIONS (1)
  - Blood pressure systolic abnormal [Recovered/Resolved]

NARRATIVE: CASE EVENT DATE: 20160315
